FAERS Safety Report 17189399 (Version 3)
Quarter: 2020Q3

REPORT INFORMATION
  Report Type: Report from Study
  Country: US (occurrence: US)
  Receive Date: 20191223
  Receipt Date: 20200817
  Transmission Date: 20201102
  Serious: No
  Sender: FDA-Public Use
  Company Number: NVSC2019US076547

PATIENT
  Sex: Male

DRUGS (1)
  1. COSENTYX [Suspect]
     Active Substance: SECUKINUMAB
     Indication: PRODUCT USED FOR UNKNOWN INDICATION
     Dosage: UNK
     Route: 065

REACTIONS (5)
  - Rash macular [Recovered/Resolved]
  - Pain [Not Recovered/Not Resolved]
  - Amnesia [Unknown]
  - Rash [Not Recovered/Not Resolved]
  - Pain in extremity [Recovering/Resolving]
